FAERS Safety Report 9913637 (Version 1)
Quarter: 2014Q1

REPORT INFORMATION
  Report Type: Spontaneous
  Country: US (occurrence: None)
  Receive Date: 20140212
  Receipt Date: 20140212
  Transmission Date: 20141002
  Serious: Yes (Death)
  Sender: FDA-Public Use
  Company Number: AUR-APL-2014-01152

PATIENT
  Age: 35 Year
  Sex: Male

DRUGS (8)
  1. PAROXETINE (PAROXETINE) [Suspect]
     Route: 048
  2. GABAPENTIN (GABAPENTIN) [Suspect]
  3. ALPRAZOLAM (ALPRAZOLAM) [Suspect]
  4. MORPHINE [Suspect]
  5. HYDROXYZINE (HYDROXYZINE) [Suspect]
  6. TRAMADOL(TRAMADOL) [Suspect]
  7. OMEPRAZOLE(OMEPRAZOLE) [Suspect]
  8. LORAZEPAM(LORAZEPAM) [Suspect]

REACTIONS (4)
  - Respiratory arrest [None]
  - Cardiac arrest [None]
  - Toxicity to various agents [None]
  - Exposure via ingestion [None]
